FAERS Safety Report 9470574 (Version 1)
Quarter: 2013Q3

REPORT INFORMATION
  Report Type: Spontaneous
  Country: US (occurrence: None)
  Receive Date: 20130820
  Receipt Date: 20130820
  Transmission Date: 20140515
  Serious: Yes (Hospitalization)
  Sender: FDA-Public Use
  Company Number: None

PATIENT
  Age: 34 Year
  Sex: Male
  Weight: 70.31 kg

DRUGS (11)
  1. VICTRELIS [Suspect]
     Indication: HEPATITIS C
     Dosage: 4 PILLS 3 TIMES DAILY MOUTH
     Route: 048
     Dates: start: 20130625, end: 20130702
  2. XANAX [Concomitant]
  3. ZOLOFT [Concomitant]
  4. VERELAN [Concomitant]
  5. LOFIBRA [Concomitant]
  6. VITAMIN C [Concomitant]
  7. VITAMIN E [Concomitant]
  8. VITAMIN D [Concomitant]
  9. VITAMIN B 12 [Concomitant]
  10. FISH OIL [Concomitant]
  11. PEGASYS [Suspect]

REACTIONS (3)
  - Cheilitis [None]
  - Skin ulcer [None]
  - Onychomadesis [None]
